FAERS Safety Report 8984141 (Version 2)
Quarter: 2013Q1

REPORT INFORMATION
  Report Type: Spontaneous
  Country: FR (occurrence: None)
  Receive Date: 20121212
  Receipt Date: 20130206
  Transmission Date: 20140127
  Serious: Yes (Hospitalization, Other)
  Sender: FDA-Public Use
  Company Number: ENT 2012-0177

PATIENT
  Age: 81 Year
  Sex: Female

DRUGS (1)
  1. COMTAN [Suspect]
     Dosage: 4 DOSAGE FORM (1 DOSAGE FORM, 4 IN 1 D) ORAL
     Route: 048
     Dates: start: 201209, end: 20121009

REACTIONS (7)
  - Dyskinesia [None]
  - Decreased activity [None]
  - Fall [None]
  - Overdose [None]
  - General physical health deterioration [None]
  - Blood pressure increased [None]
  - Disease recurrence [None]
